FAERS Safety Report 5929442-X (Version None)
Quarter: 2008Q3

REPORT INFORMATION
  Report Type: 
  Country: None (occurrence: None)
  Receive Date: 20080923
  Receipt Date: 20071019
  Transmission Date: 20090109
  Serious: Yes (Other)
  Sender: FDA-Public Use
  Company Number: WAES 0710USA04039

PATIENT
  Age: 65 Year
  Sex: Female

DRUGS (2)
  1. VYTORIN [Suspect]
     Dosage: PO
     Route: 048
     Dates: start: 20070201
  2. BACTRIM [Concomitant]

REACTIONS (1)
  - RHABDOMYOLYSIS [None]
